FAERS Safety Report 9359332 (Version 2)
Quarter: 2013Q4

REPORT INFORMATION
  Report Type: Spontaneous
  Country: US (occurrence: US)
  Receive Date: 20130620
  Receipt Date: 20131106
  Transmission Date: 20140711
  Serious: Yes (Hospitalization)
  Sender: FDA-Public Use
  Company Number: US-GILEAD-2013-0077395

PATIENT
  Age: 29 Year
  Sex: Female
  Weight: 57.14 kg

DRUGS (2)
  1. CAYSTON [Suspect]
     Indication: PRIMARY CILIARY DYSKINESIA
     Dosage: UNK
  2. CEFTAZIDIME [Suspect]
     Indication: PRODUCT USED FOR UNKNOWN INDICATION

REACTIONS (4)
  - Substance-induced psychotic disorder [Unknown]
  - Vertigo [Unknown]
  - Nausea [Unknown]
  - Vomiting [Unknown]
